FAERS Safety Report 12002766 (Version 1)
Quarter: 2016Q1

REPORT INFORMATION
  Report Type: Report from Study
  Country: US (occurrence: US)
  Receive Date: 20160204
  Receipt Date: 20160204
  Transmission Date: 20160526
  Serious: No
  Sender: FDA-Public Use
  Company Number: US-ABBVIE-15K-163-1425629-00

PATIENT
  Age: 15 Year
  Sex: Male
  Weight: 43.13 kg

DRUGS (3)
  1. HUMIRA [Suspect]
     Active Substance: ADALIMUMAB
     Indication: CROHN^S DISEASE
     Route: 065
  2. HUMIRA [Suspect]
     Active Substance: ADALIMUMAB
     Route: 065
     Dates: start: 201505
  3. HUMIRA [Suspect]
     Active Substance: ADALIMUMAB
     Route: 065
     Dates: start: 2015

REACTIONS (5)
  - Drug effect decreased [Unknown]
  - Abasia [Not Recovered/Not Resolved]
  - Injection site pain [Not Recovered/Not Resolved]
  - Crohn^s disease [Unknown]
  - Injection site discomfort [Not Recovered/Not Resolved]

NARRATIVE: CASE EVENT DATE: 2015
